FAERS Safety Report 5105430-0 (Version None)
Quarter: 2006Q3

REPORT INFORMATION
  Report Type: 
  Country: None (occurrence: None)
  Receive Date: 20060915
  Receipt Date: 20060908
  Transmission Date: 20061208
  Serious: Yes (Other)
  Sender: FDA-Public Use
  Company Number: PHBS2006BR13812

PATIENT
  Age: 62 Year
  Sex: Female
  Weight: 72 kg

DRUGS (5)
  1. TEGRETOL [Suspect]
     Dosage: 0.5 TABLET, TID
     Route: 048
  2. TEGRETOL [Suspect]
     Dosage: 0.5 TABLET IN THE MORNING
     Dates: start: 20060722
  3. NEURONTIN [Concomitant]
     Dosage: 0.5 DF, QHS
     Route: 048
  4. FIXICAL [Concomitant]
     Route: 048
  5. PURAN T4 [Concomitant]
     Indication: HYPOTHYROIDISM
     Route: 048

REACTIONS (3)
  - DIZZINESS [None]
  - OCULAR HYPERAEMIA [None]
  - SURGERY [None]
